FAERS Safety Report 4490581-4 (Version None)
Quarter: 2004Q4

REPORT INFORMATION
  Report Type: 
  Country: None (occurrence: None)
  Receive Date: 20041102
  Receipt Date: 20041027
  Transmission Date: 20050328
  Serious: Yes (Hospitalization)
  Sender: FDA-Public Use
  Company Number: 200418298US

PATIENT
  Sex: Female

DRUGS (3)
  1. LANTUS [Suspect]
     Indication: DIABETES MELLITUS INSULIN-DEPENDENT
     Dosage: DOSE: 40-45; DOSE UNIT: UNITS
     Dates: start: 20020101, end: 20041001
  2. CARDIOVASCULAR SYSTEM DRUGS [Concomitant]
     Dosage: DOSE: NOT PROVIDED
  3. ANTIHYPERTENSIVES [Concomitant]
     Dosage: DOSE: NOT PROVIDED

REACTIONS (3)
  - ANGINA PECTORIS [None]
  - BLOOD GLUCOSE FLUCTUATION [None]
  - MEDICATION ERROR [None]
